FAERS Safety Report 5932561-5 (Version None)
Quarter: 2008Q4

REPORT INFORMATION
  Report Type: 
  Country: None (occurrence: None)
  Receive Date: 20081023
  Receipt Date: 20081008
  Transmission Date: 20090506
  Serious: Yes (Hospitalization)
  Sender: FDA-Public Use
  Company Number: 2008-01133FE

PATIENT
  Age: 7 Year
  Sex: Female

DRUGS (2)
  1. DESMOPRESSIN ACETATE [Suspect]
     Indication: ENURESIS
     Dosage: IN
     Route: 042
     Dates: start: 20080401
  2. TOFRANIL [Suspect]
     Dates: start: 20080929, end: 20081001

REACTIONS (6)
  - ALTERED STATE OF CONSCIOUSNESS [None]
  - BLOOD SODIUM DECREASED [None]
  - COMA [None]
  - CONVULSION [None]
  - DRUG INTERACTION [None]
  - WATER INTOXICATION [None]
